FAERS Safety Report 10475109 (Version 1)
Quarter: 2014Q3

REPORT INFORMATION
  Report Type: Report from Study
  Country: US (occurrence: None)
  Receive Date: 20140922
  Receipt Date: 20140922
  Transmission Date: 20150326
  Serious: Yes (Hospitalization)
  Sender: FDA-Public Use
  Company Number: 2014SA106499

PATIENT
  Sex: Female

DRUGS (3)
  1. PREV MEDS [Concomitant]
  2. SOLOSTAR [Concomitant]
     Active Substance: DEVICE
  3. LANTUS SOLOSTAR [Suspect]
     Active Substance: INSULIN GLARGINE
     Indication: TYPE 2 DIABETES MELLITUS
     Dosage: 20 UNITS DAILY UNKNOWN

REACTIONS (3)
  - Appetite disorder [None]
  - Weight fluctuation [None]
  - Blood glucose increased [None]
